FAERS Safety Report 6115330-5 (Version None)
Quarter: 2009Q1

REPORT INFORMATION
  Report Type: 
  Country: None (occurrence: None)
  Receive Date: 20090313
  Receipt Date: 20090309
  Transmission Date: 20090719
  Serious: Yes (Hospitalization)
  Sender: FDA-Public Use
  Company Number: FR-JNJFOC-20090302091

PATIENT
  Sex: Male

DRUGS (4)
  1. HALDOL [Suspect]
     Indication: PSYCHOTIC DISORDER
     Route: 048
  2. THERALENE [Suspect]
     Indication: PSYCHOTIC DISORDER
     Route: 048
  3. DEPAMIDE [Concomitant]
     Indication: PSYCHOTIC DISORDER
     Route: 065
  4. VENTOLIN [Concomitant]
     Route: 065

REACTIONS (3)
  - BALANCE DISORDER [None]
  - PSYCHOMOTOR SKILLS IMPAIRED [None]
  - SOMNOLENCE [None]
